FAERS Safety Report 11442528 (Version 2)
Quarter: 2015Q3

REPORT INFORMATION
  Report Type: Report from Study
  Country: BR (occurrence: BR)
  Receive Date: 20150901
  Receipt Date: 20150914
  Transmission Date: 20151125
  Serious: Yes (Other)
  Sender: FDA-Public Use
  Company Number: BR-ABBVIE-15K-020-1443473-00

PATIENT
  Age: 63 Year
  Sex: Female
  Weight: 58 kg

DRUGS (8)
  1. AZUKON [Concomitant]
     Active Substance: GLICLAZIDE
     Indication: DIABETES MELLITUS
     Route: 048
     Dates: start: 2012
  2. HUMIRA [Suspect]
     Active Substance: ADALIMUMAB
     Route: 058
     Dates: start: 2015
  3. SIMVASTATIN. [Concomitant]
     Active Substance: SIMVASTATIN
     Indication: DIABETES MELLITUS
     Route: 048
     Dates: start: 2012
  4. METFORMIN HYDROCHLORIDE. [Concomitant]
     Active Substance: METFORMIN HYDROCHLORIDE
     Indication: DIABETES MELLITUS
     Route: 048
     Dates: start: 2012
  5. CIPROFIBRATE [Concomitant]
     Active Substance: CIPROFIBRATE
     Indication: DIABETES MELLITUS
     Route: 048
     Dates: start: 2012
  6. FONTICAL [Concomitant]
     Indication: BLOOD CALCIUM
     Route: 048
     Dates: start: 201503
  7. HUMIRA [Suspect]
     Active Substance: ADALIMUMAB
     Indication: RHEUMATOID ARTHRITIS
     Route: 058
     Dates: start: 201407, end: 20150728
  8. LEFLUNOMIDE. [Concomitant]
     Active Substance: LEFLUNOMIDE
     Indication: PRODUCT USED FOR UNKNOWN INDICATION
     Dates: end: 201507

REACTIONS (11)
  - Cough [Recovering/Resolving]
  - Corneal thinning [Recovering/Resolving]
  - Memory impairment [Not Recovered/Not Resolved]
  - Somnolence [Unknown]
  - Immunodeficiency [Unknown]
  - Alopecia [Not Recovered/Not Resolved]
  - Eye pain [Recovering/Resolving]
  - Corneal erosion [Recovering/Resolving]
  - Pruritus [Unknown]
  - Arthralgia [Not Recovered/Not Resolved]
  - Headache [Not Recovered/Not Resolved]

NARRATIVE: CASE EVENT DATE: 201506
